FAERS Safety Report 9744069 (Version 1)
Quarter: 2013Q4

REPORT INFORMATION
  Report Type: Spontaneous
  Country: JP (occurrence: JP)
  Receive Date: 20131210
  Receipt Date: 20131210
  Transmission Date: 20140711
  Serious: Yes (Life-Threatening)
  Sender: FDA-Public Use
  Company Number: JP-GLAXOSMITHKLINE-B0942163A

PATIENT
  Age: 53 Year
  Sex: Female

DRUGS (4)
  1. VOTRIENT 200MG [Suspect]
     Indication: UTERINE LEIOMYOSARCOMA
     Dosage: 200MG FOUR TIMES PER DAY
     Route: 048
     Dates: start: 20130809, end: 20131031
  2. LOXONIN [Concomitant]
     Indication: ABDOMINAL PAIN
     Dosage: 60MG THREE TIMES PER DAY
     Route: 048
     Dates: start: 20130726, end: 20131115
  3. MUCOSTA [Concomitant]
     Indication: GASTRIC DISORDER
     Dosage: 100MG THREE TIMES PER DAY
     Route: 048
     Dates: start: 20130704, end: 20131115
  4. FUROSEMIDE [Concomitant]
     Indication: ASCITES
     Dosage: 20MG PER DAY
     Route: 048
     Dates: start: 20131029, end: 20131031

REACTIONS (3)
  - Intestinal perforation [Recovering/Resolving]
  - Ascites [Unknown]
  - Metastases to peritoneum [Unknown]
